FAERS Safety Report 15306381 (Version 2)
Quarter: 2018Q3

REPORT INFORMATION
  Report Type: Spontaneous
  Country: US (occurrence: US)
  Receive Date: 20180822
  Receipt Date: 20180928
  Transmission Date: 20181010
  Serious: Yes (Other)
  Sender: FDA-Public Use
  Company Number: US-ASTRAZENECA-2018SF05376

PATIENT
  Age: 77 Year
  Sex: Male
  Weight: 71.7 kg

DRUGS (5)
  1. ASPIR?81 [Concomitant]
     Active Substance: ASPIRIN
     Dosage: 81.0MG UNKNOWN
     Route: 048
  2. BRILINTA [Suspect]
     Active Substance: TICAGRELOR
     Route: 048
  3. ATORVASTATIN CALCIUM. [Concomitant]
     Active Substance: ATORVASTATIN CALCIUM
     Route: 048
  4. ZANTAC [Concomitant]
     Active Substance: RANITIDINE HYDROCHLORIDE
     Route: 048
  5. LISINOPRIL. [Concomitant]
     Active Substance: LISINOPRIL
     Route: 048

REACTIONS (24)
  - Renal cell carcinoma [Unknown]
  - Anaemia [Unknown]
  - Coronary artery disease [Unknown]
  - Constipation [Unknown]
  - Sinusitis [Unknown]
  - Arthritis [Unknown]
  - Gastrooesophageal reflux disease [Unknown]
  - Palpitations [Unknown]
  - Increased tendency to bruise [Not Recovered/Not Resolved]
  - Chronic obstructive pulmonary disease [Unknown]
  - Terminal insomnia [Unknown]
  - Hyperlipidaemia [Unknown]
  - Exercise tolerance decreased [Not Recovered/Not Resolved]
  - Angina pectoris [Unknown]
  - Arthropod bite [Unknown]
  - Psoriasis [Unknown]
  - Musculoskeletal discomfort [Unknown]
  - Muscle strain [Unknown]
  - Weight decreased [Unknown]
  - Aortic aneurysm [Unknown]
  - Blood pressure increased [Unknown]
  - Blood cholesterol increased [Unknown]
  - Hypertension [Unknown]
  - Off label use [Not Recovered/Not Resolved]
